FAERS Safety Report 6226303-6 (Version None)
Quarter: 2009Q2

REPORT INFORMATION
  Report Type: 
  Country: None (occurrence: None)
  Receive Date: 20090612
  Receipt Date: 20090601
  Transmission Date: 20091009
  Serious: Yes (Hospitalization, Other)
  Sender: FDA-Public Use
  Company Number: US-JNJFOC-20090600720

PATIENT
  Sex: Male
  Weight: 72.58 kg

DRUGS (40)
  1. DOXIL [Suspect]
     Dosage: GIVEN ON DAY 4 OF EACH VELCADE CYCLE
     Route: 042
  2. DOXIL [Suspect]
     Dosage: GIVEN ON DAY 4 OF EACH VELCADE CYCLE
     Route: 042
  3. DOXIL [Suspect]
     Indication: MULTIPLE MYELOMA
     Dosage: GIVEN ON DAY 4 OF EACH VELCADE CYCLE
     Route: 042
  4. VELCADE [Suspect]
     Dosage: ADMINISTERED ON DAYS 1,4,8 AND 11 OF CYCLE 4
     Route: 042
  5. VELCADE [Suspect]
     Dosage: ADMINISTERED ON DAYS 1,4,8 AND 11 OF CYCLE 3
     Route: 042
  6. VELCADE [Suspect]
     Dosage: ADMINISTERED ON DAYS 1,4,8 DAY 11 HELD   CYCLE 2
     Route: 042
  7. VELCADE [Suspect]
     Indication: MULTIPLE MYELOMA
     Dosage: ADMINISTERED ON DAYS 1,4,8 AND 11 OF CYCLE 1
     Route: 042
  8. ALINIA [Concomitant]
     Route: 048
  9. LIPITOR [Concomitant]
     Route: 048
  10. LISINOPRIL [Concomitant]
     Route: 048
  11. METOPROLOL SUCCINATE [Concomitant]
     Route: 048
  12. LORAZEPAM [Concomitant]
     Route: 048
  13. SUCRALFATE [Concomitant]
     Route: 048
  14. ACIDOPHILUS [Concomitant]
     Route: 048
  15. SENOKOT [Concomitant]
     Route: 048
  16. ZOFRAN [Concomitant]
     Route: 048
  17. PERCOCET [Concomitant]
     Dosage: 5MG-325MG
     Route: 048
  18. BACLOFEN [Concomitant]
     Dosage: 5MG-325MG
     Route: 048
  19. NORCO [Concomitant]
     Dosage: 5MG-325MG
     Route: 048
  20. CHLORPROMAZINE [Concomitant]
     Dosage: 5MG-325MG
     Route: 048
  21. REGLAN [Concomitant]
     Dosage: 5MG-325MG
     Route: 048
  22. PROMETHAZINE [Concomitant]
     Dosage: 5MG-325MG
     Route: 050
  23. OXYCONTIN [Concomitant]
     Dosage: 5MG-325MG
     Route: 048
  24. OXYCONTIN [Concomitant]
     Dosage: 5MG-325MG
     Route: 048
  25. REPLIVA [Concomitant]
     Dosage: 5MG-325MG
     Route: 048
  26. NEURONTIN [Concomitant]
     Route: 048
  27. NEURONTIN [Concomitant]
     Dosage: 5MG-325MG
     Route: 048
  28. ZOLPIDEM TARTRATE [Concomitant]
     Route: 048
  29. LIBRAX [Concomitant]
     Dosage: 5MG-2.5MG
     Route: 048
  30. CATAPRES-TTS-1 [Concomitant]
     Dosage: 5MG-2.5MG
     Route: 048
  31. CALTRATE [Concomitant]
     Dosage: 5MG-2.5MG
     Route: 048
  32. MEGACE [Concomitant]
     Dosage: 5MG-2.5MG
     Route: 048
  33. DILTIAZEM [Concomitant]
     Dosage: 5MG-2.5MG
     Route: 048
  34. DICYCLOMINE HCL [Concomitant]
     Dosage: 5MG-2.5MG
     Route: 048
  35. NEXIUM [Concomitant]
     Dosage: 5MG-2.5MG
     Route: 048
  36. CYMBALTA [Concomitant]
     Dosage: 5MG-2.5MG
     Route: 048
  37. TRAMADOL HCL [Concomitant]
     Route: 048
  38. HALOPERIDOL [Concomitant]
     Route: 048
  39. OXYCODONE HCL [Concomitant]
     Route: 048
  40. ASPIRIN [Concomitant]
     Route: 048

REACTIONS (2)
  - INTESTINAL OBSTRUCTION [None]
  - NEUROPATHY PERIPHERAL [None]
